FAERS Safety Report 9698633 (Version 1)
Quarter: 2013Q4

REPORT INFORMATION
  Report Type: Spontaneous
  Country: US (occurrence: US)
  Receive Date: 20131120
  Receipt Date: 20131120
  Transmission Date: 20140711
  Serious: Yes (Other)
  Sender: FDA-Public Use
  Company Number: US-MPIJNJ-2013MPI000981

PATIENT
  Age: 38 Year
  Sex: 0

DRUGS (1)
  1. VELCADE [Suspect]
     Indication: PLASMA CELL MYELOMA
     Dosage: 1.3 MG/M2, AS DIRECTED
     Route: 042
     Dates: start: 20100503

REACTIONS (2)
  - Haemorrhage [Unknown]
  - Deep vein thrombosis [Unknown]
